FAERS Safety Report 5117276-8 (Version None)
Quarter: 2006Q3

REPORT INFORMATION
  Report Type: 
  Country: None (occurrence: None)
  Receive Date: 20060927
  Receipt Date: 20060927
  Transmission Date: 20061208
  Serious: Yes (Other)
  Sender: FDA-Public Use
  Company Number: None

PATIENT
  Age: 18 Year
  Sex: Female
  Weight: 54.7 kg

DRUGS (1)
  1. CLINDAMYCIN [Suspect]
     Indication: WOUND INFECTION
     Dosage: 500 MG Q8H IV
     Route: 042
     Dates: start: 20060915

REACTIONS (5)
  - CHEST PAIN [None]
  - DYSPNOEA [None]
  - ERYTHEMA [None]
  - OEDEMA PERIPHERAL [None]
  - PRURITUS [None]
